FAERS Safety Report 4580356-X (Version None)
Quarter: 2005Q1

REPORT INFORMATION
  Report Type: 
  Country: None (occurrence: None)
  Receive Date: 20050214
  Receipt Date: 20040106
  Transmission Date: 20050727
  Serious: No
  Sender: FDA-Public Use
  Company Number: US-GLAXOSMITHKLINE-A0491720A

PATIENT
  Age: 56 Year
  Sex: Female

DRUGS (4)
  1. LAMICTAL [Suspect]
     Dosage: 125MG PER DAY
     Route: 048
  2. DEPAKOTE [Concomitant]
  3. PROZAC [Concomitant]
  4. KLONOPIN [Concomitant]

REACTIONS (4)
  - BLISTER [None]
  - HAEMORRHAGE [None]
  - PAIN [None]
  - VAGINAL MYCOSIS [None]
